FAERS Safety Report 10950735 (Version 3)
Quarter: 2015Q2

REPORT INFORMATION
  Report Type: Spontaneous
  Country: US (occurrence: US)
  Receive Date: 20150324
  Receipt Date: 20150623
  Transmission Date: 20150821
  Serious: Yes (Hospitalization, Other)
  Sender: FDA-Public Use
  Company Number: US-009507513-1202USA01972

PATIENT
  Sex: Female
  Weight: 53.61 kg

DRUGS (4)
  1. FOSAMAX [Suspect]
     Active Substance: ALENDRONATE SODIUM
     Indication: OSTEOPOROSIS
     Dosage: 10 MG, QD
     Route: 048
     Dates: start: 20000925
  2. ALPRAZOLAM. [Concomitant]
     Active Substance: ALPRAZOLAM
     Dosage: UNK
     Dates: start: 2003
  3. FOSAMAX [Suspect]
     Active Substance: ALENDRONATE SODIUM
     Indication: OSTEOPENIA
     Dosage: 70 MG, QW
     Route: 048
     Dates: start: 2003, end: 2009
  4. ALENDRONATE SODIUM. [Suspect]
     Active Substance: ALENDRONATE SODIUM
     Indication: OSTEOPOROSIS
     Dosage: 70 MG, QW
     Route: 048
     Dates: start: 2009, end: 20110810

REACTIONS (16)
  - Foot fracture [Unknown]
  - Osteoarthritis [Unknown]
  - Facet joint syndrome [Unknown]
  - Femur fracture [Unknown]
  - Dyspnoea [Unknown]
  - Osteoarthritis [Unknown]
  - Calcium deficiency [Unknown]
  - Foot fracture [Unknown]
  - Vitamin D deficiency [Unknown]
  - Intramedullary rod insertion [Unknown]
  - Fracture [Unknown]
  - Hypertension [Unknown]
  - Hippocampal sclerosis [Unknown]
  - Impaired healing [Unknown]
  - Lumbar vertebral fracture [Unknown]
  - Osteoarthritis [Unknown]

NARRATIVE: CASE EVENT DATE: 2003
